FAERS Safety Report 24750949 (Version 1)
Quarter: 2024Q4

REPORT INFORMATION
  Report Type: Spontaneous
  Country: BR (occurrence: BR)
  Receive Date: 20241219
  Receipt Date: 20241219
  Transmission Date: 20250114
  Serious: Yes (Hospitalization, Other)
  Sender: AMGEN
  Company Number: BR-AMGEN-BRASP2024245342

PATIENT
  Age: 23 Year
  Sex: Male

DRUGS (1)
  1. XGEVA [Suspect]
     Active Substance: DENOSUMAB
     Indication: Bone giant cell tumour
     Dosage: 120 MILLIGRAM, QMO
     Route: 058
     Dates: start: 20160508

REACTIONS (8)
  - Hypovolaemic shock [Unknown]
  - Deep vein thrombosis [Unknown]
  - Retrograde ejaculation [Recovered/Resolved]
  - Back pain [Unknown]
  - Haemorrhage [Unknown]
  - Haemodynamic instability [Unknown]
  - Bone giant cell tumour [Unknown]
  - Gait disturbance [Unknown]

NARRATIVE: CASE EVENT DATE: 20160101
